FAERS Safety Report 4452864-3 (Version None)
Quarter: 2004Q3

REPORT INFORMATION
  Report Type: 
  Country: None (occurrence: None)
  Receive Date: 20040916
  Receipt Date: 20040902
  Transmission Date: 20050211
  Serious: Yes (Hospitalization)
  Sender: FDA-Public Use
  Company Number: 207915

PATIENT
  Age: 75 Year
  Sex: Male
  Weight: 53.2 kg

DRUGS (12)
  1. BEVACIZUMAB (BEVACIZUMAB) PWDR + SOLVENT, INFUSION SOLN, 100MG [Suspect]
     Indication: COLORECTAL CANCER METASTATIC
     Dosage: 5 MG/KG, Q2W, INTRAVENOUS
     Route: 042
     Dates: start: 20040322
  2. OXALIPLATIN [Suspect]
     Indication: COLORECTAL CANCER METASTATIC
     Dosage: SEE IMAGE
     Route: 042
     Dates: start: 20040322, end: 20040405
  3. FLUOROURACIL [Suspect]
     Indication: COLORECTAL CANCER METASTATIC
     Dosage: SEE IMAGE
     Route: 042
     Dates: start: 20040322, end: 20040405
  4. LEUCOVORIN CALCIUM [Suspect]
     Indication: COLORECTAL CANCER METASTATIC
     Dosage: 20 MG/M2, 1/WEEK, INTRAVENOUS
     Route: 042
     Dates: start: 20040322
  5. LORAZEPAM [Concomitant]
  6. AMLODIPINE BESYLATE (AMLODIPINE BESYLATE) [Concomitant]
  7. ATENOLOL [Concomitant]
  8. MIRTAZAPINE [Concomitant]
  9. BENAZEPRIL (BENAZEPRIL HYDROCHLORIDE) [Concomitant]
  10. PROCHLORPERAZINE EDISYLATE [Concomitant]
  11. BUSPIRONE (BUSPIRONE HYDROCHLORIDE) [Concomitant]
  12. FERROUS SULFATE TAB [Concomitant]

REACTIONS (6)
  - ASTHENIA [None]
  - BLOOD POTASSIUM DECREASED [None]
  - BLOOD UREA INCREASED [None]
  - CLOSTRIDIUM COLITIS [None]
  - DEHYDRATION [None]
  - FALL [None]
